FAERS Safety Report 14426375 (Version 3)
Quarter: 2021Q3

REPORT INFORMATION
  Report Type: Spontaneous
  Country: US (occurrence: US)
  Receive Date: 20180123
  Receipt Date: 20210821
  Transmission Date: 20211014
  Serious: Yes (Other)
  Sender: FDA-Public Use
  Company Number: US-ROCHE-2021214

PATIENT
  Sex: Female

DRUGS (3)
  1. PROZAC [Concomitant]
     Active Substance: FLUOXETINE HYDROCHLORIDE
     Dosage: STARTED 5 YEARS AGO
  2. OCREVUS [Suspect]
     Active Substance: OCRELIZUMAB
     Indication: RELAPSING-REMITTING MULTIPLE SCLEROSIS
     Route: 042
     Dates: start: 201705
  3. CYMBALTA [Suspect]
     Active Substance: DULOXETINE HYDROCHLORIDE
     Indication: PRODUCT USED FOR UNKNOWN INDICATION
     Dosage: STARTED FEW DAYS AGO
     Route: 065

REACTIONS (10)
  - Narcolepsy [Not Recovered/Not Resolved]
  - Fatigue [Unknown]
  - Multiple sclerosis [Unknown]
  - Malaise [Unknown]
  - Insomnia [Not Recovered/Not Resolved]
  - Nausea [Unknown]
  - Fall [Unknown]
  - Headache [Unknown]
  - Migraine [Unknown]
  - Vertigo [Unknown]
